FAERS Safety Report 23582503 (Version 1)
Quarter: 2024Q1

REPORT INFORMATION
  Report Type: Spontaneous
  Country: JP (occurrence: JP)
  Receive Date: 20240229
  Receipt Date: 20240229
  Transmission Date: 20240410
  Serious: Yes (Hospitalization)
  Sender: FDA-Public Use
  Company Number: JP-Eisai-202314294_HAL_P_1

PATIENT
  Age: 76 Year
  Sex: Female
  Weight: 42 kg

DRUGS (9)
  1. HALAVEN [Suspect]
     Active Substance: ERIBULIN MESYLATE
     Indication: Breast cancer recurrent
     Route: 041
     Dates: start: 20230816, end: 20231025
  2. ZOLPIDEM TARTRATE [Concomitant]
     Active Substance: ZOLPIDEM TARTRATE
     Indication: Product used for unknown indication
     Dosage: BEFORE SLEEP
     Route: 065
     Dates: start: 20230731
  3. OMEPRAZOLE [Concomitant]
     Active Substance: OMEPRAZOLE
     Indication: Product used for unknown indication
     Dosage: AFTER BREAKFAST
     Route: 065
     Dates: start: 20230805
  4. CALONAL [Concomitant]
     Active Substance: ACETAMINOPHEN
     Indication: Product used for unknown indication
     Dosage: AT THE TIME OF PAIN
     Route: 065
     Dates: start: 20230709
  5. DENOSUMAB [Concomitant]
     Active Substance: DENOSUMAB
     Indication: Product used for unknown indication
     Dosage: FREQUENCY UNKNOWN
     Route: 058
     Dates: start: 20210609, end: 20231018
  6. CALCIUM CARBONATE\CHOLECALCIFEROL\MAGNESIUM CARBONATE [Concomitant]
     Active Substance: CALCIUM CARBONATE\CHOLECALCIFEROL\MAGNESIUM CARBONATE
     Indication: Product used for unknown indication
     Dosage: 2 TABLETS AT A TIME AFTER BREAKFAST
     Route: 065
     Dates: start: 20210609
  7. CRESTOR [Concomitant]
     Active Substance: ROSUVASTATIN CALCIUM
     Dosage: AFTER DINNER?LISTED ON THE MEDICAL RECORD AS MEDICATION HISTORY IN MARCH 2021
     Route: 065
  8. CINAL [Concomitant]
     Indication: Product used for unknown indication
     Dosage: 2 TABLETS AT A TIME AFTER EACH MEAL
     Route: 065
  9. TRANILAST [Concomitant]
     Active Substance: TRANILAST
     Indication: Product used for unknown indication
     Dosage: BOTH EYES

REACTIONS (1)
  - Interstitial lung disease [Recovering/Resolving]

NARRATIVE: CASE EVENT DATE: 20231022
